FAERS Safety Report 9437579 (Version 2)
Quarter: 2013Q3

REPORT INFORMATION
  Report Type: Spontaneous
  Country: BR (occurrence: BR)
  Receive Date: 20130802
  Receipt Date: 20130826
  Transmission Date: 20140515
  Serious: Yes (Death)
  Sender: FDA-Public Use
  Company Number: BR-SHIRE-ALL1-2013-05186

PATIENT
  Sex: Male

DRUGS (2)
  1. ELAPRASE [Suspect]
     Indication: MUCOPOLYSACCHARIDOSIS II
     Dosage: 0.5 MG/KG, UNKNOWN
     Route: 041
     Dates: start: 201003, end: 20130722
  2. ELAPRASE [Suspect]
     Dosage: UNK UNK, UNKNOWN
     Route: 041
     Dates: start: 201003

REACTIONS (2)
  - Malnutrition [Fatal]
  - Infection [Fatal]
